FAERS Safety Report 5664242-X (Version None)
Quarter: 2008Q1

REPORT INFORMATION
  Report Type: 
  Country: None (occurrence: None)
  Receive Date: 20080314
  Receipt Date: 20080305
  Transmission Date: 20080703
  Serious: Yes (Hospitalization)
  Sender: FDA-Public Use
  Company Number: IT-BAYER-200814553GPV

PATIENT
  Age: 42 Year
  Sex: Female

DRUGS (1)
  1. MIRENA [Suspect]
     Indication: CONTRACEPTION
     Route: 015
     Dates: start: 20071113, end: 20071202

REACTIONS (5)
  - ANAEMIA [None]
  - ENDOMETRIAL DISORDER [None]
  - METRORRHAGIA [None]
  - PROGESTERONE INCREASED [None]
  - UTERINE POLYP [None]
